FAERS Safety Report 10563211 (Version 1)
Quarter: 2014Q4

REPORT INFORMATION
  Report Type: Report from Study
  Country: PE (occurrence: PE)
  Receive Date: 20141104
  Receipt Date: 20141104
  Transmission Date: 20150529
  Serious: Yes (Death, Other)
  Sender: FDA-Public Use
  Company Number: PE-GLAXOSMITHKLINE-PE2014GSK012842

PATIENT
  Age: 72 Year
  Sex: Female

DRUGS (1)
  1. FLUTICASONE PROPIONATE+SALMETEROL XINAFOATE [Suspect]
     Active Substance: FLUTICASONE PROPIONATE\SALMETEROL XINAFOATE
     Indication: ASTHMA
     Dosage: 500 UG, UNK
     Route: 055
     Dates: start: 20130905

REACTIONS (1)
  - Death [Fatal]

NARRATIVE: CASE EVENT DATE: 201409
